FAERS Safety Report 19077977 (Version 1)
Quarter: 2021Q1

REPORT INFORMATION
  Report Type: Spontaneous
  Country: FR (occurrence: FR)
  Receive Date: 20210331
  Receipt Date: 20210331
  Transmission Date: 20210420
  Serious: Yes (Other)
  Sender: FDA-Public Use
  Company Number: FR-MYLANLABS-2021M1018958

PATIENT
  Age: 64 Year
  Sex: Male

DRUGS (5)
  1. OXALIPLATIN. [Suspect]
     Active Substance: OXALIPLATIN
     Indication: ADENOCARCINOMA OF COLON
     Dosage: FOUR ADDITIONAL CYCLES....
     Route: 013
  2. GEMCITABINE. [Suspect]
     Active Substance: GEMCITABINE
     Indication: ADENOCARCINOMA OF COLON
     Dosage: 1000 MILLIGRAM/SQ. METER, CYCLE...
     Route: 013
     Dates: start: 2008
  3. OXALIPLATIN. [Suspect]
     Active Substance: OXALIPLATIN
     Indication: METASTASES TO LIVER
     Dosage: 100 MILLIGRAM/SQ. METER, CYCLE...
     Route: 013
  4. GEMCITABINE. [Suspect]
     Active Substance: GEMCITABINE
     Indication: METASTASES TO LIVER
     Dosage: FOUR ADDITIONAL CYCLES OF...
     Route: 013
  5. IODINE. [Concomitant]
     Active Substance: IODINE
     Indication: SCAN WITH CONTRAST
     Dosage: 1 ML/S OF IODINE CONTRAST....
     Route: 065
     Dates: start: 2008, end: 2008

REACTIONS (2)
  - Asthenia [Unknown]
  - Thrombocytopenia [Unknown]
